FAERS Safety Report 17279694 (Version 2)
Quarter: 2020Q3

REPORT INFORMATION
  Report Type: Spontaneous
  Country: US (occurrence: US)
  Receive Date: 20200116
  Receipt Date: 20200819
  Transmission Date: 20201102
  Serious: Yes (Other)
  Sender: FDA-Public Use
  Company Number: US-ASTRAZENECA-2020SE05879

PATIENT
  Sex: Male
  Weight: 124.7 kg

DRUGS (54)
  1. LISINOPRIL. [Concomitant]
     Active Substance: LISINOPRIL
  2. FENOFIBRATE. [Concomitant]
     Active Substance: FENOFIBRATE
  3. FLUOCINOLONE [Concomitant]
     Active Substance: FLUOCINOLONE
  4. MORPHINE [Concomitant]
     Active Substance: MORPHINE
  5. TAMSULOSIN HYDROCHLORIDE. [Concomitant]
     Active Substance: TAMSULOSIN HYDROCHLORIDE
  6. FENOFIBRATE. [Concomitant]
     Active Substance: FENOFIBRATE
  7. FLUOROURACIL. [Concomitant]
     Active Substance: FLUOROURACIL
  8. NEXIUM [Suspect]
     Active Substance: ESOMEPRAZOLE MAGNESIUM
     Indication: GASTROOESOPHAGEAL REFLUX DISEASE
     Route: 048
     Dates: start: 2011, end: 2018
  9. OXYCODONE [Concomitant]
     Active Substance: OXYCODONE
     Indication: PAIN
     Dates: start: 2014
  10. ENDOCET [Concomitant]
     Active Substance: ACETAMINOPHEN\OXYCODONE HYDROCHLORIDE
  11. MOVANTIK [Concomitant]
     Active Substance: NALOXEGOL OXALATE
  12. BUPROPION HYDROCHLORIDE. [Concomitant]
     Active Substance: BUPROPION HYDROCHLORIDE
  13. VITAMIN D [Concomitant]
     Active Substance: VITAMIN D NOS
  14. LEVOTHYROXINE. [Concomitant]
     Active Substance: LEVOTHYROXINE
     Indication: THYROID DISORDER
     Dates: start: 2014
  15. LYRICA [Concomitant]
     Active Substance: PREGABALIN
  16. BREO ELLIPTA [Concomitant]
     Active Substance: FLUTICASONE FUROATE\VILANTEROL TRIFENATATE
  17. ALBUTEROL SULFATE. [Concomitant]
     Active Substance: ALBUTEROL SULFATE
  18. TRIAMCINOLONE ACETONIDE. [Concomitant]
     Active Substance: TRIAMCINOLONE ACETONIDE
  19. LANSOPRAZOLE. [Suspect]
     Active Substance: LANSOPRAZOLE
     Indication: GASTROOESOPHAGEAL REFLUX DISEASE
     Route: 065
     Dates: start: 202004
  20. CYCLOBENZAPRINE. [Concomitant]
     Active Substance: CYCLOBENZAPRINE
  21. PRAVASTATIN. [Concomitant]
     Active Substance: PRAVASTATIN
  22. METHOTREXATE. [Concomitant]
     Active Substance: METHOTREXATE
  23. DIAZEPAM. [Concomitant]
     Active Substance: DIAZEPAM
  24. COLCRYS [Concomitant]
     Active Substance: COLCHICINE
  25. OXYCODONE [Concomitant]
     Active Substance: OXYCODONE
  26. LEVOTHYROXINE SODIUM. [Concomitant]
     Active Substance: LEVOTHYROXINE SODIUM
  27. MIRTAZAPINE. [Concomitant]
     Active Substance: MIRTAZAPINE
  28. GABAPENTIN. [Concomitant]
     Active Substance: GABAPENTIN
  29. NEXIUM [Suspect]
     Active Substance: ESOMEPRAZOLE MAGNESIUM
     Indication: GASTROOESOPHAGEAL REFLUX DISEASE
     Route: 048
     Dates: start: 200102, end: 201812
  30. LISINOPRIL. [Concomitant]
     Active Substance: LISINOPRIL
     Indication: HYPERTENSION
     Dates: start: 2014
  31. NOVOLIN NOS [Concomitant]
     Active Substance: INSULIN HUMAN
     Indication: DIABETES MELLITUS
     Dates: start: 2014
  32. PRAVASTATIN. [Concomitant]
     Active Substance: PRAVASTATIN
     Indication: BLOOD CHOLESTEROL INCREASED
     Dates: start: 2014
  33. AMLODIPINE [Concomitant]
     Active Substance: AMLODIPINE BESYLATE
  34. CARISOPRODOL. [Concomitant]
     Active Substance: CARISOPRODOL
  35. AMOXICILLIN. [Concomitant]
     Active Substance: AMOXICILLIN
  36. DESONIDE. [Concomitant]
     Active Substance: DESONIDE
  37. AMLODIPINE [Concomitant]
     Active Substance: AMLODIPINE BESYLATE
  38. BUPROPION. [Concomitant]
     Active Substance: BUPROPION
  39. RANITIDINE. [Concomitant]
     Active Substance: RANITIDINE
  40. FLUZONE [Concomitant]
     Active Substance: INFLUENZA A VIRUS A/CALIFORNIA/7/2009 X-179A (H1N1) ANTIGEN (FORMALDEHYDE INACTIVATED)\INFLUENZA A VIRUS A/VICTORIA/210/2009 X-187 (H3N2) ANTIGEN (FORMALDEHYDE INACTIVATED)\INFLUENZA B VIRUS B/BRISBANE/60/2008 ANTIGEN (FORMALDEHYDE INACTIVATED)
  41. NEXIUM [Suspect]
     Active Substance: ESOMEPRAZOLE MAGNESIUM
     Indication: GASTROOESOPHAGEAL REFLUX DISEASE
     Dosage: GENERIC
     Route: 065
     Dates: start: 2018, end: 2019
  42. ASPIRIN. [Concomitant]
     Active Substance: ASPIRIN
     Indication: BLOOD PRESSURE ABNORMAL
     Dates: start: 2015
  43. VICTOZA [Concomitant]
     Active Substance: LIRAGLUTIDE
     Indication: TYPE 2 DIABETES MELLITUS
     Dates: start: 2019
  44. VELTASSA [Concomitant]
     Active Substance: PATIROMER
  45. CARISOPRODOL. [Concomitant]
     Active Substance: CARISOPRODOL
  46. TIZANIDINE. [Concomitant]
     Active Substance: TIZANIDINE
  47. TAMSULOSIN [Concomitant]
     Active Substance: TAMSULOSIN
  48. TRIAMCINOLONE [Concomitant]
     Active Substance: TRIAMCINOLONE
  49. TERBINAFINE. [Concomitant]
     Active Substance: TERBINAFINE
  50. TRIAMCINOLONE [Concomitant]
     Active Substance: TRIAMCINOLONE
  51. FOLIC ACID. [Concomitant]
     Active Substance: FOLIC ACID
  52. FLUOCINONIDE. [Concomitant]
     Active Substance: FLUOCINONIDE
  53. PREVNAR [Concomitant]
     Active Substance: PNEUMOCOCCAL 7-VALENT CONJUGATE VACCINE (DIPHTHERIA CRM197 PROTEIN)
  54. IBUPROFEN. [Concomitant]
     Active Substance: IBUPROFEN

REACTIONS (2)
  - Chronic kidney disease [Not Recovered/Not Resolved]
  - Acute kidney injury [Unknown]
